FAERS Safety Report 9279332 (Version 1)
Quarter: 2013Q2

REPORT INFORMATION
  Report Type: Report from Study
  Country: US (occurrence: US)
  Receive Date: 20130508
  Receipt Date: 20130508
  Transmission Date: 20140414
  Serious: Yes (Other)
  Sender: FDA-Public Use
  Company Number: US-ABBOTT-13P-163-1084274-00

PATIENT
  Age: 83 Year
  Sex: Female
  Weight: 81.72 kg

DRUGS (15)
  1. HUMIRA [Suspect]
     Indication: RHEUMATOID ARTHRITIS
     Dosage: TAKES ON THE 1ST AND 15TH OF EACH MONTH
     Route: 058
     Dates: start: 2008
  2. HUMIRA [Suspect]
     Indication: COLITIS
  3. HUMIRA [Suspect]
     Indication: DIVERTICULITIS
  4. PRADAXA [Concomitant]
     Indication: CARDIAC PACEMAKER INSERTION
  5. MULTIVITAMIN [Concomitant]
     Indication: PRODUCT USED FOR UNKNOWN INDICATION
  6. MELATONIN OTC [Concomitant]
     Indication: PRODUCT USED FOR UNKNOWN INDICATION
  7. BUMEX [Concomitant]
     Indication: PRODUCT USED FOR UNKNOWN INDICATION
  8. PROTONIX [Concomitant]
     Indication: PRODUCT USED FOR UNKNOWN INDICATION
  9. FLORASTOR [Concomitant]
     Indication: PRODUCT USED FOR UNKNOWN INDICATION
  10. SOTALOL [Concomitant]
     Indication: PRODUCT USED FOR UNKNOWN INDICATION
  11. LISINOPRIL [Concomitant]
     Indication: PRODUCT USED FOR UNKNOWN INDICATION
  12. IMURAN [Concomitant]
     Indication: PRODUCT USED FOR UNKNOWN INDICATION
  13. PRIMIDONE [Concomitant]
     Indication: PRODUCT USED FOR UNKNOWN INDICATION
  14. ICAPS [Concomitant]
     Indication: PRODUCT USED FOR UNKNOWN INDICATION
  15. LOMOTIL [Concomitant]
     Indication: DIARRHOEA

REACTIONS (1)
  - Precancerous skin lesion [Not Recovered/Not Resolved]
